FAERS Safety Report 10468408 (Version 1)
Quarter: 2014Q3

REPORT INFORMATION
  Report Type: Spontaneous
  Country: None (occurrence: US)
  Receive Date: 20140922
  Receipt Date: 20140922
  Transmission Date: 20150326
  Serious: No
  Sender: FDA-Public Use
  Company Number: US-ALLERGAN-1404119US

PATIENT
  Age: 61 Year
  Sex: Female

DRUGS (2)
  1. NON-PRESERVED EYE DROPS NOS [Concomitant]
     Indication: EYE LUBRICATION THERAPY
     Dosage: UNK
  2. LASTACAFT [Suspect]
     Active Substance: ALCAFTADINE
     Indication: EYE ALLERGY
     Dosage: 2 GTT, QD
     Route: 047
     Dates: start: 20140220, end: 20140224

REACTIONS (2)
  - Vision blurred [Recovering/Resolving]
  - Ocular hyperaemia [Recovering/Resolving]

NARRATIVE: CASE EVENT DATE: 20140221
